FAERS Safety Report 8477987-3 (Version None)
Quarter: 2012Q2

REPORT INFORMATION
  Report Type: 
  Country: None (occurrence: None)
  Receive Date: 20120629
  Receipt Date: 20120629
  Transmission Date: 20120825
  Serious: Yes (Other)
  Sender: FDA-Public Use
  Company Number: ES-BAYER-2012-064186

PATIENT
  Sex: Male

DRUGS (1)
  1. LEVITRA [Suspect]
     Indication: ERECTILE DYSFUNCTION
     Dosage: UNK
     Dates: start: 20120101

REACTIONS (1)
  - CARDIOVASCULAR DISORDER [None]
